FAERS Safety Report 4426364-0 (Version None)
Quarter: 2004Q3

REPORT INFORMATION
  Report Type: 
  Country: None (occurrence: None)
  Receive Date: 20040811
  Receipt Date: 20040806
  Transmission Date: 20050211
  Serious: Yes (Hospitalization)
  Sender: FDA-Public Use
  Company Number: TCI2004A02966

PATIENT
  Age: 49 Year
  Sex: Female

DRUGS (4)
  1. TAKEPRON OD TABLETS 30 (LANSOPRAZOLE) (TABLETS) [Suspect]
     Indication: REFLUX OESOPHAGITIS
     Dosage: 30 MG (30 MG, 1 IN 1 D) PER ORAL
     Route: 048
     Dates: start: 20040417, end: 20040603
  2. NORVASC [Concomitant]
  3. COVERSYL (PERINDOPRIL) (TABLETS) [Concomitant]
  4. MAGNESIUM OXIDE (MAGNESIUM OXIDE) (PREPARATION FOR ORAL USE (NOS)) [Concomitant]

REACTIONS (3)
  - HAEMATOCHEZIA [None]
  - INTESTINAL ISCHAEMIA [None]
  - LARGE INTESTINAL ULCER [None]
